FAERS Safety Report 13004014 (Version 1)
Quarter: 2016Q4

REPORT INFORMATION
  Report Type: Spontaneous
  Country: CA (occurrence: CA)
  Receive Date: 20161206
  Receipt Date: 20161206
  Transmission Date: 20170207
  Serious: No
  Sender: FDA-Public Use
  Company Number: CA-JAZZ-2015-CA-002966

PATIENT
  Sex: Female

DRUGS (17)
  1. XYREM [Suspect]
     Active Substance: SODIUM OXYBATE
     Dosage: 6 G, UNK
  2. XYREM [Suspect]
     Active Substance: SODIUM OXYBATE
     Dosage: 3.75 G, BID
     Dates: start: 20121212
  3. XYREM [Suspect]
     Active Substance: SODIUM OXYBATE
     Dosage: 10.25 G, UNK
     Dates: start: 201305
  4. XYREM [Suspect]
     Active Substance: SODIUM OXYBATE
     Dosage: 5 G, BID
     Dates: start: 20101209
  5. XYREM [Suspect]
     Active Substance: SODIUM OXYBATE
     Dosage: 2.25 G, BID
     Dates: start: 201207
  6. XYREM [Suspect]
     Active Substance: SODIUM OXYBATE
     Dosage: 3 G, BID
     Dates: start: 20120827
  7. XYREM [Suspect]
     Active Substance: SODIUM OXYBATE
     Dosage: 6.5 G, UNK
  8. XYREM [Suspect]
     Active Substance: SODIUM OXYBATE
     Dosage: 7 G, UNK
  9. XYREM [Suspect]
     Active Substance: SODIUM OXYBATE
     Dosage: 8.75 G, UNK
  10. XYREM [Suspect]
     Active Substance: SODIUM OXYBATE
     Dosage: 8 G, UNK
  11. XYREM [Suspect]
     Active Substance: SODIUM OXYBATE
     Dosage: 8.25 G, UNK
  12. XYREM [Suspect]
     Active Substance: SODIUM OXYBATE
     Dosage: 4.75 G, BID
     Dates: start: 20081016
  13. XYREM [Suspect]
     Active Substance: SODIUM OXYBATE
     Dosage: 5.25 G, BID
     Dates: start: 20090307
  14. XYREM [Suspect]
     Active Substance: SODIUM OXYBATE
     Dosage: 5 G, BID
     Dates: start: 201401
  15. XYREM [Suspect]
     Active Substance: SODIUM OXYBATE
     Indication: FIBROMYALGIA
     Dosage: 2.25 G, BID
     Dates: start: 20071214
  16. XYREM [Suspect]
     Active Substance: SODIUM OXYBATE
     Dosage: 7.5 G, UNK
  17. XYREM [Suspect]
     Active Substance: SODIUM OXYBATE
     Dosage: DOSE TITRATED DOWN
     Dates: start: 201101

REACTIONS (2)
  - Inappropriate schedule of drug administration [Unknown]
  - Intentional overdose [Unknown]
